FAERS Safety Report 7973992 (Version 2)
Quarter: 2013Q4

REPORT INFORMATION
  Report Type: Spontaneous
  Country: US (occurrence: US)
  Receive Date: 20110603
  Receipt Date: 20131226
  Transmission Date: 20140711
  Serious: Yes (Hospitalization, Other)
  Sender: FDA-Public Use
  Company Number: US-BAYER-2011-047114

PATIENT
  Age: 46 Year
  Sex: Female

DRUGS (3)
  1. YAZ [Suspect]
     Dosage: UNK
     Dates: start: 200801, end: 200905
  2. YASMIN [Suspect]
     Dosage: UNK
     Dates: start: 200801, end: 200905
  3. OCELLA [Suspect]
     Dosage: UNK
     Dates: start: 200801, end: 200905

REACTIONS (8)
  - Cholelithiasis [Unknown]
  - Cholecystitis chronic [None]
  - Fear [Unknown]
  - Injury [None]
  - Pain [Unknown]
  - Emotional distress [Unknown]
  - Anxiety [Unknown]
  - Psychological trauma [None]
